FAERS Safety Report 7820352-X (Version None)
Quarter: 2011Q4

REPORT INFORMATION
  Report Type: 
  Country: None (occurrence: None)
  Receive Date: 20111018
  Receipt Date: 20111007
  Transmission Date: 20120403
  Serious: Yes (Hospitalization)
  Sender: FDA-Public Use
  Company Number: US-CELGENEUS-163-21880-11020723

PATIENT
  Sex: Male

DRUGS (12)
  1. THALOMID [Suspect]
     Indication: MULTIPLE MYELOMA
     Dosage: 400 MILLIGRAM
     Route: 048
     Dates: start: 20110501, end: 20110101
  2. REVLIMID [Suspect]
     Dosage: 25 MILLIGRAM
     Route: 048
     Dates: start: 20110201, end: 20110510
  3. VINCRISTINE [Concomitant]
     Route: 065
     Dates: start: 20110701
  4. DEXAMETHASONE [Concomitant]
     Route: 065
     Dates: start: 20110501
  5. DOXORUBICIN HCL [Concomitant]
     Route: 065
     Dates: start: 20110701
  6. CYCLOPHOSPHAMIDE [Concomitant]
     Route: 065
     Dates: start: 20110501
  7. DOXORUBICIN HCL [Concomitant]
     Route: 065
     Dates: start: 20110501
  8. ETOPOSIDE [Concomitant]
     Route: 065
  9. DEXAMETHASONE [Concomitant]
     Route: 065
     Dates: start: 20110701
  10. CISPLATIN [Concomitant]
     Route: 065
     Dates: start: 20110501
  11. REVLIMID [Suspect]
     Indication: MULTIPLE MYELOMA
     Dosage: 10 MILLIGRAM
     Route: 048
     Dates: start: 20101202, end: 20110201
  12. CYCLOPHOSPHAMIDE [Concomitant]
     Route: 065
     Dates: start: 20110701

REACTIONS (2)
  - MULTIPLE MYELOMA [None]
  - LEUKAEMIA PLASMACYTIC [None]
